FAERS Safety Report 17447670 (Version 1)
Quarter: 2020Q1

REPORT INFORMATION
  Report Type: Spontaneous
  Country: US (occurrence: US)
  Receive Date: 20200221
  Receipt Date: 20200221
  Transmission Date: 20200409
  Serious: No
  Sender: FDA-Public Use
  Company Number: US-BAUSCH-BL-2020-003902

PATIENT

DRUGS (1)
  1. LUMIFY [Suspect]
     Active Substance: BRIMONIDINE TARTRATE
     Indication: PRODUCT USED FOR UNKNOWN INDICATION
     Dosage: USING FOR ABOUT 3 WEEKS
     Route: 065
     Dates: start: 201909

REACTIONS (5)
  - Nasal pruritus [Unknown]
  - Sneezing [Unknown]
  - Eye inflammation [Unknown]
  - Iris disorder [Not Recovered/Not Resolved]
  - Nasal discomfort [Unknown]

NARRATIVE: CASE EVENT DATE: 201909
